FAERS Safety Report 5914737-6 (Version None)
Quarter: 2008Q4

REPORT INFORMATION
  Report Type: 
  Country: None (occurrence: None)
  Receive Date: 20081010
  Receipt Date: 20081003
  Transmission Date: 20090506
  Serious: Yes (Other)
  Sender: FDA-Public Use
  Company Number: US-NOVOPROD-279483

PATIENT
  Sex: Female

DRUGS (2)
  1. NOVOLOG [Suspect]
     Indication: DIABETES MELLITUS
     Route: 058
  2. LEVEMIR [Suspect]
     Indication: DIABETES MELLITUS
     Route: 058

REACTIONS (8)
  - BLOOD PRESSURE DECREASED [None]
  - CARDIOMEGALY [None]
  - DYSPNOEA [None]
  - GENERALISED OEDEMA [None]
  - HEART RATE INCREASED [None]
  - RASH [None]
  - VISUAL IMPAIRMENT [None]
  - WEIGHT INCREASED [None]
